FAERS Safety Report 6616905-7 (Version None)
Quarter: 2010Q1

REPORT INFORMATION
  Report Type: 
  Country: None (occurrence: None)
  Receive Date: 20100301
  Receipt Date: 20100216
  Transmission Date: 20100710
  Serious: Yes (Other)
  Sender: FDA-Public Use
  Company Number: 507867

PATIENT
  Age: 67 Year
  Sex: Male

DRUGS (4)
  1. HEPARIN SODIUM INJECTION [Suspect]
     Indication: DRUG USE FOR UNKNOWN INDICATION
     Dosage: 5000 UNITS, 1 EVERY 12 HOURS, SUBCUTANEOUS
     Route: 058
     Dates: start: 20071214, end: 20071217
  2. HEPARIN SODIUM INJECTION [Suspect]
     Indication: DRUG USE FOR UNKNOWN INDICATION
     Dosage: 5000 UNITS, 1 EVERY 12 HOURS, SUBCUTANEOUS
     Route: 058
     Dates: start: 20071217, end: 20071217
  3. HEPARIN [Suspect]
     Indication: DRUG USE FOR UNKNOWN INDICATION
     Dosage: 60 UNITS/KG, BOLUS, INTRAVENOUS @ 18:00, 9-11 UNITS/HOUR, CONTINUOUS, INTRAVENOUS BOLUS @ 18:00
     Route: 040
     Dates: start: 20071217, end: 20071217
  4. HEPARIN [Suspect]
     Indication: DRUG USE FOR UNKNOWN INDICATION
     Dosage: 60 UNITS/KG, BOLUS, INTRAVENOUS @ 18:00, 9-11 UNITS/HOUR, CONTINUOUS, INTRAVENOUS BOLUS @ 18:00
     Route: 040
     Dates: start: 20071217, end: 20071220

REACTIONS (2)
  - EMBOLIC STROKE [None]
  - HYPOTENSION [None]
